FAERS Safety Report 16974151 (Version 1)
Quarter: 2019Q4

REPORT INFORMATION
  Report Type: Spontaneous
  Country: US (occurrence: US)
  Receive Date: 20190912
  Receipt Date: 20190912
  Transmission Date: 20200122
  Serious: No
  Sender: FDA-Public Use
  Company Number: None

PATIENT
  Age: 79 Year
  Sex: Male

DRUGS (1)
  1. OPSUMIT [Suspect]
     Active Substance: MACITENTAN
     Indication: PULMONARY HYPERTENSION
     Route: 048
     Dates: start: 20190817, end: 20190909

REACTIONS (4)
  - Body temperature increased [None]
  - Fatigue [None]
  - Chills [None]
  - Pulmonary congestion [None]

NARRATIVE: CASE EVENT DATE: 20190909
